FAERS Safety Report 20112552 (Version 1)
Quarter: 2021Q4

REPORT INFORMATION
  Report Type: Spontaneous
  Country: EG (occurrence: EG)
  Receive Date: 20211125
  Receipt Date: 20211125
  Transmission Date: 20220304
  Serious: Yes (Hospitalization, Other)
  Sender: FDA-Public Use
  Company Number: EG-NOVARTISPH-NVSC2021EG264732

PATIENT
  Age: 4 Year
  Sex: Male
  Weight: 19 kg

DRUGS (5)
  1. AMOXICILLIN\CLAVULANATE POTASSIUM [Suspect]
     Active Substance: AMOXICILLIN\CLAVULANATE POTASSIUM
     Indication: Tonsillitis
     Dosage: 457 MG WITH A DOSE OF (365.6 MG AMOXICILLIN TRIHYDRATE AND 60.8 MG CLAVULANATE POTASSIUM) EACH 12 HO
     Route: 048
     Dates: start: 20210928
  2. UNICTAM [Concomitant]
     Indication: Tonsillitis
     Dosage: 750 MG VIAL WITH A DOSE OF 2 CM EVERY 12 HR
     Route: 030
     Dates: start: 20210926
  3. MAXILASE [Concomitant]
     Active Substance: PANCRELIPASE
     Indication: Tonsillar inflammation
     Dosage: DOSE OF 3.5 CM
     Route: 048
  4. DICLOFENAC [Concomitant]
     Active Substance: DICLOFENAC
     Indication: Product used for unknown indication
     Dosage: DOSE OF 4 CM ORALLY EVERY 8 HOURS
     Route: 048
  5. VENTOCOUGH [Concomitant]
     Indication: Product used for unknown indication
     Dosage: DOSE OF 5 CM EVERY 8 HOURS
     Route: 065

REACTIONS (5)
  - Hypersensitivity [Recovered/Resolved]
  - Infectious mononucleosis [Recovered/Resolved]
  - Drug hypersensitivity [Unknown]
  - Rash [Unknown]
  - Erythema [Unknown]

NARRATIVE: CASE EVENT DATE: 20210928
